FAERS Safety Report 5782606-0 (Version None)
Quarter: 2008Q2

REPORT INFORMATION
  Report Type: 
  Country: None (occurrence: None)
  Receive Date: 20080624
  Receipt Date: 20080602
  Transmission Date: 20081010
  Serious: Yes (Death, Other)
  Sender: FDA-Public Use
  Company Number: CA-PFIZER INC-2008051237

PATIENT
  Age: 31 Year
  Sex: Male

DRUGS (6)
  1. HYDROXYZINE HYDROCHLORIDE [Suspect]
     Route: 048
  2. MORPHINE SULFATE [Suspect]
  3. CLINDAMYCIN HCL [Suspect]
     Route: 048
  4. ACETAMINOPHEN [Suspect]
     Route: 048
  5. TOPIRAMATE [Suspect]
     Route: 048
  6. COCAINE [Suspect]

REACTIONS (1)
  - SUBSTANCE ABUSE [None]
